FAERS Safety Report 6203837-1 (Version None)
Quarter: 2009Q2

REPORT INFORMATION
  Report Type: 
  Country: None (occurrence: None)
  Receive Date: 20090527
  Receipt Date: 20090514
  Transmission Date: 20091009
  Serious: Yes (Hospitalization)
  Sender: FDA-Public Use
  Company Number: TW-PFIZER INC-2009214898

PATIENT
  Age: 57 Year

DRUGS (6)
  1. BLINDED *PLACEBO [Suspect]
     Indication: PROSTATE CANCER
     Dosage: 37.5 MG, 1X/DAY
     Route: 048
     Dates: start: 20090430, end: 20090511
  2. BLINDED SUNITINIB MALATE [Suspect]
     Indication: PROSTATE CANCER
     Dosage: 37.5 MG, 1X/DAY
     Route: 048
     Dates: start: 20090430, end: 20090511
  3. PREDNISOLONE [Suspect]
     Indication: PROSTATE CANCER
     Dosage: FREQUENCY: TWICE DAILY;
     Route: 048
     Dates: start: 20090212
  4. TRAMADOL [Concomitant]
     Indication: BONE PAIN
     Dosage: UNK
     Dates: start: 20090413
  5. BISACODYL [Concomitant]
     Indication: CONSTIPATION
     Dosage: UNK
     Dates: start: 20090423
  6. MORPHINE [Concomitant]
     Indication: BONE PAIN
     Dosage: UNK
     Dates: start: 20090430

REACTIONS (4)
  - ASPARTATE AMINOTRANSFERASE INCREASED [None]
  - DYSPNOEA [None]
  - ILEUS [None]
  - MALAISE [None]
